FAERS Safety Report 24356837 (Version 1)
Quarter: 2024Q3

REPORT INFORMATION
  Report Type: Other
  Country: TN (occurrence: TN)
  Receive Date: 20240924
  Receipt Date: 20240924
  Transmission Date: 20241016
  Serious: Yes (Other)
  Sender: ZHEJIANG JINGXIN PHARMACEUTICAL
  Company Number: TN-Zhejiang Jingxin Pharmaceutical Co., Ltd-2161973

PATIENT
  Age: 20 Year
  Sex: Male

DRUGS (1)
  1. LEVETIRACETAM [Suspect]
     Active Substance: LEVETIRACETAM
     Indication: Petit mal epilepsy

REACTIONS (1)
  - Bipolar disorder [Recovered/Resolved]
